FAERS Safety Report 25988933 (Version 1)
Quarter: 2025Q4

REPORT INFORMATION
  Report Type: Spontaneous
  Country: EU (occurrence: EU)
  Receive Date: 20251103
  Receipt Date: 20251103
  Transmission Date: 20260118
  Serious: Yes (Other)
  Sender: CHATTEM
  Company Number: None

PATIENT
  Age: 42 Year
  Sex: Female
  Weight: 60 kg

DRUGS (2)
  1. FEXOFENADINE HYDROCHLORIDE [Suspect]
     Active Substance: FEXOFENADINE HYDROCHLORIDE
     Indication: Hypersensitivity
     Dosage: 1X 180MG
     Route: 048
  2. DIMETHINDENE MALEATE [Suspect]
     Active Substance: DIMETHINDENE MALEATE
     Indication: Hypersensitivity
     Dosage: UNFORTUNATELY WE DO NOT KNOW THE TIME PERIOD, BUT THIS HAS OCCURRED SEVERAL TIMES, HENCE IT IS REPRO
     Route: 048

REACTIONS (2)
  - Hallucination, visual [Recovered/Resolved]
  - Labelled drug-drug interaction issue [Unknown]
